FAERS Safety Report 8519380 (Version 3)
Quarter: 2013Q2

REPORT INFORMATION
  Report Type: Spontaneous
  Country: US (occurrence: US)
  Receive Date: 20120418
  Receipt Date: 20130411
  Transmission Date: 20140414
  Serious: No
  Sender: FDA-Public Use
  Company Number: US-ELI_LILLY_AND_COMPANY-US201110002169

PATIENT
  Age: 58 Year
  Sex: Female

DRUGS (6)
  1. FORTEO [Suspect]
     Indication: OSTEOPOROSIS
     Dosage: 20 UG, QD
     Route: 065
     Dates: start: 20111001, end: 201210
  2. FORTEO [Suspect]
     Dosage: 20 UG, QD
     Route: 065
     Dates: start: 20111001, end: 201210
  3. FOSAMAX [Concomitant]
     Dosage: 70 MG, WEEKLY (1/W)
  4. CITRAL [Concomitant]
     Dosage: UNK, BID
  5. OMEGA 3 FISH OIL [Concomitant]
     Dosage: UNK, QD
  6. VITAMIN D [Concomitant]
     Dosage: 50000 DF, WEEKLY (1/W)

REACTIONS (11)
  - Rash [Unknown]
  - Injection site injury [Recovering/Resolving]
  - Injection site erythema [Unknown]
  - Injection site reaction [Not Recovered/Not Resolved]
  - Injection site swelling [Recovering/Resolving]
  - Headache [Recovered/Resolved]
  - Injection site pain [Unknown]
  - Muscle spasms [Recovered/Resolved]
  - Injection site bruising [Unknown]
  - Dizziness [Unknown]
  - Diarrhoea [Unknown]
